FAERS Safety Report 7686373-5 (Version None)
Quarter: 2011Q3

REPORT INFORMATION
  Report Type: 
  Country: None (occurrence: None)
  Receive Date: 20110816
  Receipt Date: 20110808
  Transmission Date: 20111222
  Serious: Yes (Hospitalization)
  Sender: FDA-Public Use
  Company Number: NL-GLAXOSMITHKLINE-B0739642A

PATIENT
  Sex: Male
  Weight: 97 kg

DRUGS (4)
  1. PAZOPANIB [Suspect]
     Indication: NEOPLASM MALIGNANT
     Route: 048
     Dates: start: 20110720
  2. DOCETAXEL [Suspect]
     Indication: NEOPLASM MALIGNANT
     Route: 042
     Dates: start: 20110804
  3. FENTANYL [Concomitant]
     Route: 062
  4. MORPHINE [Concomitant]
     Route: 048

REACTIONS (1)
  - PYREXIA [None]
